FAERS Safety Report 11505987 (Version 2)
Quarter: 2015Q4

REPORT INFORMATION
  Report Type: Spontaneous
  Country: DE (occurrence: DE)
  Receive Date: 20150915
  Receipt Date: 20151015
  Transmission Date: 20160304
  Serious: Yes (Hospitalization, Other)
  Sender: FDA-Public Use
  Company Number: DE-SUN PHARMACEUTICAL INDUSTRIES LTD-2015RR-102925

PATIENT

DRUGS (1)
  1. SERTRALINE [Suspect]
     Active Substance: SERTRALINE HYDROCHLORIDE
     Indication: PRODUCT USED FOR UNKNOWN INDICATION
     Dosage: 50 MG, DAILY
     Route: 065

REACTIONS (3)
  - Drug withdrawal syndrome [Unknown]
  - Suicidal ideation [Unknown]
  - Circulatory collapse [Unknown]
